FAERS Safety Report 4924562-0 (Version None)
Quarter: 2006Q1

REPORT INFORMATION
  Report Type: 
  Country: None (occurrence: None)
  Receive Date: 20060222
  Receipt Date: 20060213
  Transmission Date: 20060701
  Serious: Yes (Life-Threatening, Hospitalization)
  Sender: FDA-Public Use
  Company Number: 2006015239

PATIENT
  Age: 26 Year
  Sex: Female
  Weight: 56.5 kg

DRUGS (6)
  1. GENOTROPIN [Suspect]
     Indication: HYPOPITUITARISM
     Dosage: 1.4 MG (1.4 MG, DAILY)
     Dates: start: 19980211
  2. HYDROCORTISONE [Concomitant]
  3. LEVOTHYROXINE SODIUM [Concomitant]
  4. DHEA (PRASTERONE) [Concomitant]
  5. DESMOPRESSIN ACETATE [Concomitant]
  6. YASMIN [Concomitant]

REACTIONS (1)
  - OVARIAN DYSGERMINOMA STAGE UNSPECIFIED [None]
